FAERS Safety Report 9988348 (Version 47)
Quarter: 2018Q2

REPORT INFORMATION
  Report Type: Report from Study
  Country: CA (occurrence: CA)
  Receive Date: 20140310
  Receipt Date: 20180619
  Transmission Date: 20180711
  Serious: Yes (Hospitalization, Other)
  Sender: FDA-Public Use
  Company Number: CA-ROCHE-1113555

PATIENT
  Age: 35 Year
  Sex: Female
  Weight: 118 kg

DRUGS (29)
  1. ACTEMRA [Suspect]
     Active Substance: TOCILIZUMAB
     Route: 042
     Dates: start: 20140424
  2. ACTEMRA [Suspect]
     Active Substance: TOCILIZUMAB
     Route: 042
     Dates: start: 20140619
  3. CLOMID [Concomitant]
     Active Substance: CLOMIPHENE CITRATE
     Route: 065
  4. ACTEMRA [Suspect]
     Active Substance: TOCILIZUMAB
     Dosage: INFUSION #85
     Route: 042
     Dates: start: 20180410
  5. PREDNISONE. [Suspect]
     Active Substance: PREDNISONE
     Indication: PRODUCT USED FOR UNKNOWN INDICATION
     Route: 065
  6. EURO-FOLIC [Concomitant]
     Active Substance: FOLIC ACID
  7. SULFASALAZINE. [Concomitant]
     Active Substance: SULFASALAZINE
  8. SYMBICORT [Concomitant]
     Active Substance: BUDESONIDE\FORMOTEROL FUMARATE DIHYDRATE
  9. PROVERA [Concomitant]
     Active Substance: MEDROXYPROGESTERONE ACETATE
  10. ACTEMRA [Suspect]
     Active Substance: TOCILIZUMAB
     Indication: RHEUMATOID ARTHRITIS
     Route: 042
     Dates: start: 20110609
  11. ACTEMRA [Suspect]
     Active Substance: TOCILIZUMAB
     Route: 042
     Dates: start: 20140814
  12. ACTEMRA [Suspect]
     Active Substance: TOCILIZUMAB
     Dosage: INFUSION #79
     Route: 042
     Dates: start: 20170921
  13. RAMIPRIL. [Concomitant]
     Active Substance: RAMIPRIL
  14. CYKLOKAPRON [Concomitant]
     Active Substance: TRANEXAMIC ACID
  15. GLUCOPHAGE [Concomitant]
     Active Substance: METFORMIN HYDROCHLORIDE
     Route: 065
     Dates: start: 20120206
  16. PREDNISONE. [Concomitant]
     Active Substance: PREDNISONE
     Route: 065
  17. ACTEMRA [Suspect]
     Active Substance: TOCILIZUMAB
     Route: 042
     Dates: start: 20140522
  18. METHYLDOPA. [Suspect]
     Active Substance: METHYLDOPA
     Indication: HYPERTENSION
     Route: 065
     Dates: start: 201202
  19. CYCLOBENZAPRINE. [Concomitant]
     Active Substance: CYCLOBENZAPRINE
  20. PANTOPRAZOLE [Concomitant]
     Active Substance: PANTOPRAZOLE
  21. ACTONEL [Concomitant]
     Active Substance: RISEDRONATE SODIUM
  22. TRIAZIDE [Concomitant]
  23. CORTISONE [Concomitant]
     Active Substance: CORTISONE\HYDROCORTISONE
     Dosage: DECREASE DOSE
     Route: 065
     Dates: start: 20120227
  24. NAPROXEN. [Concomitant]
     Active Substance: NAPROXEN
     Dosage: TWICE A DAY
     Route: 048
  25. BRICANYL [Concomitant]
     Active Substance: TERBUTALINE SULFATE
  26. ACTEMRA [Suspect]
     Active Substance: TOCILIZUMAB
     Route: 042
     Dates: start: 20140327
  27. SEROPHENE [Suspect]
     Active Substance: CLOMIPHENE CITRATE
     Indication: PRODUCT USED FOR UNKNOWN INDICATION
     Route: 065
  28. CORTISONE [Concomitant]
     Active Substance: CORTISONE\HYDROCORTISONE
     Route: 065
  29. PROMETRIUM [Concomitant]
     Active Substance: PROGESTERONE

REACTIONS (55)
  - Diverticulitis [Recovered/Resolved]
  - Arthralgia [Unknown]
  - Fine motor skill dysfunction [Unknown]
  - Blood pressure fluctuation [Unknown]
  - Chills [Unknown]
  - Fallopian tube disorder [Not Recovered/Not Resolved]
  - Foot deformity [Unknown]
  - Nasal congestion [Recovered/Resolved]
  - Disability assessment scale score increased [Unknown]
  - Weight decreased [Not Recovered/Not Resolved]
  - Contusion [Not Recovered/Not Resolved]
  - Weight loss poor [Unknown]
  - Deformity [Unknown]
  - Diverticulitis [Recovered/Resolved]
  - Blood iron decreased [Not Recovered/Not Resolved]
  - Nasopharyngitis [Recovered/Resolved]
  - Oedema peripheral [Not Recovered/Not Resolved]
  - Nodule [Not Recovered/Not Resolved]
  - Blood pressure fluctuation [Unknown]
  - Cough [Recovered/Resolved]
  - Rash erythematous [Unknown]
  - Adnexal torsion [Unknown]
  - Musculoskeletal pain [Not Recovered/Not Resolved]
  - Heart rate increased [Unknown]
  - Pain in extremity [Unknown]
  - Hypotension [Unknown]
  - Swelling [Not Recovered/Not Resolved]
  - Musculoskeletal stiffness [Unknown]
  - Insomnia [Not Recovered/Not Resolved]
  - Uterine disorder [Not Recovered/Not Resolved]
  - Rheumatoid arthritis [Unknown]
  - Joint noise [Unknown]
  - Muscle spasms [Unknown]
  - Urticaria [Recovering/Resolving]
  - Fatigue [Not Recovered/Not Resolved]
  - Neck pain [Not Recovered/Not Resolved]
  - Blood pressure diastolic increased [Unknown]
  - Headache [Not Recovered/Not Resolved]
  - Pyrexia [Unknown]
  - Joint stiffness [Unknown]
  - Ovarian cyst [Not Recovered/Not Resolved]
  - Weight increased [Unknown]
  - Joint range of motion decreased [Unknown]
  - Hypoaesthesia [Not Recovered/Not Resolved]
  - Infusion related reaction [Recovering/Resolving]
  - Infertility [Not Recovered/Not Resolved]
  - Peripheral swelling [Unknown]
  - Blood pressure increased [Unknown]
  - Lower respiratory tract congestion [Unknown]
  - Rheumatoid nodule [Not Recovered/Not Resolved]
  - Nerve injury [Not Recovered/Not Resolved]
  - Amenorrhoea [Not Recovered/Not Resolved]
  - Dizziness [Unknown]
  - Arthralgia [Not Recovered/Not Resolved]
  - Onychomycosis [Unknown]

NARRATIVE: CASE EVENT DATE: 20120221
